FAERS Safety Report 7332587-3 (Version None)
Quarter: 2011Q1

REPORT INFORMATION
  Report Type: 
  Country: None (occurrence: None)
  Receive Date: 20110304
  Receipt Date: 20110301
  Transmission Date: 20110831
  Serious: Yes (Death, Life-Threatening, Hospitalization)
  Sender: FDA-Public Use
  Company Number: PHHY2011NL16573

PATIENT
  Sex: Female

DRUGS (3)
  1. NEORAL [Suspect]
     Indication: PSORIASIS
     Dosage: 100MG, 2DD150MG (2X 100MG AND 2X2X25MG)
     Dates: start: 20090903, end: 20101201
  2. CHOP [Concomitant]
  3. AMILORIDE HCL AND HYDROCHLOROTHIAZIDE [Concomitant]
     Dosage: 5/50MG, 1DD1
     Dates: start: 20040101

REACTIONS (1)
  - NON-HODGKIN'S LYMPHOMA [None]
